FAERS Safety Report 7582945-7 (Version None)
Quarter: 2011Q2

REPORT INFORMATION
  Report Type: 
  Country: None (occurrence: None)
  Receive Date: 20110630
  Receipt Date: 20090820
  Transmission Date: 20111010
  Serious: Yes (Death, Other)
  Sender: FDA-Public Use
  Company Number: US-BAYER-200930388NA

PATIENT
  Age: 78 Year
  Sex: Male
  Weight: 136 kg

DRUGS (27)
  1. NORVASC [Concomitant]
     Dosage: 5 MG, QD
     Route: 048
  2. ISOSORBIDE MONONITRATE [Concomitant]
     Dosage: 30 MG, QD
     Route: 048
  3. HEPARIN [Concomitant]
     Dosage: UNK
     Route: 042
     Dates: start: 20060808
  4. FENTANYL [Concomitant]
     Dosage: UNK
     Route: 042
     Dates: start: 20060808
  5. INSULIN [Concomitant]
     Dosage: UNK
     Route: 042
     Dates: start: 20060808
  6. ACETYLSALICYLIC ACID SRT [Concomitant]
     Dosage: 81 MG, QD
     Route: 048
  7. PLAVIX [Concomitant]
     Dosage: 75 MG, QD
     Route: 048
  8. SODIUM BICARBONATE [Concomitant]
     Dosage: UNK
     Route: 042
     Dates: start: 20060808
  9. BACITRACIN [Concomitant]
  10. ZOSYN [Concomitant]
  11. PLASMA [Concomitant]
     Dosage: 500 ML, ONCE
     Route: 042
  12. ACTOS [Concomitant]
     Dosage: 30 MG, QD
     Route: 048
  13. NITROGLYCERIN [Concomitant]
     Dosage: 0.4 MG AS NEEDED
     Route: 060
  14. HUMULIN 70/30 [Concomitant]
     Dosage: 42 UNITS EVERY MORNING
     Route: 058
  15. AZITHROMYCIN [Concomitant]
     Dosage: 500 MG, QD
     Route: 048
     Dates: start: 20060719, end: 20060721
  16. TRASYLOL [Suspect]
     Indication: CORONARY ARTERY BYPASS
     Dosage: 50 ML/HOUR INFUSION
     Route: 042
     Dates: start: 20060808, end: 20060808
  17. LASIX [Concomitant]
     Dosage: 120 MG, QD
     Route: 048
  18. AVELOX [Concomitant]
     Dosage: 400 MG, QD
     Route: 048
     Dates: start: 20060725
  19. HUMULIN 70/30 [Concomitant]
     Dosage: 28 UNITS EVERY EVENING
     Route: 058
  20. DAPTOMYCIN [Concomitant]
  21. METOPROLOL TARTRATE [Concomitant]
     Dosage: 50 MG, BID
     Route: 048
  22. VERSED [Concomitant]
     Dosage: UNK
     Route: 042
     Dates: start: 20060808
  23. TRASYLOL [Suspect]
     Indication: PRODUCT USED FOR UNKNOWN INDICATION
     Dosage: 300 ML LOADING DOSE
     Route: 042
     Dates: start: 20060808, end: 20060808
  24. TRASYLOL [Suspect]
     Dosage: 200 ML CARDIOPULMONARY BYPASS PRIME
     Dates: start: 20060808, end: 20060808
  25. ENALAPRIL MALEATE [Concomitant]
     Dosage: 20 MG, BID
     Route: 048
  26. NITROGLYCERIN [Concomitant]
     Dosage: UNK
     Route: 042
     Dates: start: 20060808
  27. PACKED RED BLOOD CELLS [Concomitant]
     Dosage: 3 U, ONCE
     Route: 042
     Dates: start: 20060808

REACTIONS (12)
  - STRESS [None]
  - INJURY [None]
  - ANXIETY [None]
  - FEAR [None]
  - UNEVALUABLE EVENT [None]
  - RENAL IMPAIRMENT [None]
  - RENAL INJURY [None]
  - PAIN [None]
  - DEATH [None]
  - EMOTIONAL DISTRESS [None]
  - MULTI-ORGAN FAILURE [None]
  - ANHEDONIA [None]
